FAERS Safety Report 20210742 (Version 1)
Quarter: 2021Q4

REPORT INFORMATION
  Report Type: Spontaneous
  Country: US (occurrence: US)
  Receive Date: 20211221
  Receipt Date: 20211221
  Transmission Date: 20220303
  Serious: No
  Sender: FDA-Public Use
  Company Number: US-GSKCCFUS-Case-01245271_AE-72925

PATIENT
  Sex: Male

DRUGS (1)
  1. TRELEGY ELLIPTA [Suspect]
     Active Substance: FLUTICASONE FUROATE\UMECLIDINIUM BROMIDE\VILANTEROL TRIFENATATE
     Indication: Chronic obstructive pulmonary disease
     Dosage: 1 PUFF(S), QD(200/62.5/25MCG)
     Route: 055
     Dates: start: 202112

REACTIONS (5)
  - Dyspnoea [Unknown]
  - Panic attack [Unknown]
  - Drug ineffective [Not Recovered/Not Resolved]
  - Overdose [Unknown]
  - Off label use [Unknown]
